FAERS Safety Report 4781439-1 (Version None)
Quarter: 2005Q3

REPORT INFORMATION
  Report Type: 
  Country: None (occurrence: None)
  Receive Date: 20050928
  Receipt Date: 20040820
  Transmission Date: 20060218
  Serious: Yes (Hospitalization)
  Sender: FDA-Public Use
  Company Number: GBWYE996424AUG04

PATIENT
  Sex: Male
  Weight: 97 kg

DRUGS (11)
  1. ENBREL [Suspect]
     Indication: RHEUMATOID ARTHRITIS
     Route: 058
     Dates: start: 20031020, end: 20040101
  2. ENBREL [Suspect]
     Route: 058
     Dates: start: 20040701
  3. METHOTREXATE [Suspect]
  4. FOLIC ACID [Concomitant]
  5. DIAZEPAM [Concomitant]
  6. DIHYDROCODEINE BITARTRATE INJ [Concomitant]
  7. ROFECOXIB [Concomitant]
  8. TAMSULOSIN [Concomitant]
  9. TEMAZEPAM [Concomitant]
  10. LANSOPRAZOLE [Concomitant]
  11. CITALOPRAM [Concomitant]

REACTIONS (2)
  - INFECTION [None]
  - PULMONARY FIBROSIS [None]
